FAERS Safety Report 6515348-4 (Version None)
Quarter: 2009Q4

REPORT INFORMATION
  Report Type: 
  Country: None (occurrence: None)
  Receive Date: 20091223
  Receipt Date: 20091208
  Transmission Date: 20100525
  Serious: Yes (Congenital Anomaly)
  Sender: FDA-Public Use
  Company Number: IN-MYLANLABS-2009S1021029

PATIENT
  Sex: Female

DRUGS (1)
  1. METHOTREXATE [Suspect]
     Indication: RHEUMATOID ARTHRITIS
     Route: 064

REACTIONS (7)
  - ABORTION INDUCED [None]
  - ANENCEPHALY [None]
  - DEXTROCARDIA [None]
  - HETEROTAXIA [None]
  - MATERNAL DRUGS AFFECTING FOETUS [None]
  - MULTIPLE CONGENITAL ABNORMALITIES [None]
  - SPINA BIFIDA [None]
